FAERS Safety Report 7007253-4 (Version None)
Quarter: 2010Q3

REPORT INFORMATION
  Report Type: 
  Country: None (occurrence: None)
  Receive Date: 20100920
  Receipt Date: 20100820
  Transmission Date: 20110219
  Serious: Yes (Other)
  Sender: FDA-Public Use
  Company Number: A-US2010-39696

PATIENT
  Age: 44 Year
  Sex: Female
  Weight: 98.9 kg

DRUGS (2)
  1. ZAVESCA [Suspect]
     Indication: GAUCHER'S DISEASE
     Dosage: 100 MG, TID, ORAL
     Route: 048
     Dates: start: 20091201, end: 20100101
  2. CEREZYME [Concomitant]

REACTIONS (14)
  - ANGIOTENSIN CONVERTING ENZYME INCREASED [None]
  - BACK PAIN [None]
  - BLOOD ACID PHOSPHATASE INCREASED [None]
  - BONE PAIN [None]
  - CHITOTRIOSIDASE INCREASED [None]
  - DISEASE PROGRESSION [None]
  - ECONOMIC PROBLEM [None]
  - FATIGUE [None]
  - FIBRIN D DIMER INCREASED [None]
  - GAUCHER'S DISEASE [None]
  - HEADACHE [None]
  - INTERLEUKIN LEVEL INCREASED [None]
  - PAIN IN EXTREMITY [None]
  - WEIGHT INCREASED [None]
